FAERS Safety Report 6025056-4 (Version None)
Quarter: 2008Q4

REPORT INFORMATION
  Report Type: 
  Country: None (occurrence: None)
  Receive Date: 20081222
  Receipt Date: 20081031
  Transmission Date: 20090506
  Serious: No
  Sender: FDA-Public Use
  Company Number: ALL1-2008-03179

PATIENT
  Age: 56 Year
  Sex: Male
  Weight: 99.8 kg

DRUGS (3)
  1. VYVANSE [Suspect]
     Indication: ATTENTION DEFICIT/HYPERACTIVITY DISORDER
     Dosage: 30 MG, 1X/DAY:QD, ORAL ; 30 MG, OTHER (2 CAPSULES DAILY), ORAL
     Route: 048
     Dates: start: 20080601, end: 20081022
  2. VYVANSE [Suspect]
     Indication: ATTENTION DEFICIT/HYPERACTIVITY DISORDER
     Dosage: 30 MG, 1X/DAY:QD, ORAL ; 30 MG, OTHER (2 CAPSULES DAILY), ORAL
     Route: 048
     Dates: start: 20081025
  3. CITALOPRAM HYDROBROMIDE [Concomitant]

REACTIONS (4)
  - CONDITION AGGRAVATED [None]
  - DECREASED APPETITE [None]
  - TIC [None]
  - WEIGHT DECREASED [None]
